FAERS Safety Report 12194039 (Version 2)
Quarter: 2016Q1

REPORT INFORMATION
  Report Type: Report from Study
  Country: US (occurrence: US)
  Receive Date: 20160321
  Receipt Date: 20160328
  Transmission Date: 20160526
  Serious: No
  Sender: FDA-Public Use
  Company Number: US-AMGEN-USASL2016032397

PATIENT
  Age: 70 Year
  Sex: Female

DRUGS (1)
  1. ENBREL [Suspect]
     Active Substance: ETANERCEPT
     Indication: PSORIASIS
     Dosage: 50 MG, QWK
     Route: 065
     Dates: start: 20150820

REACTIONS (6)
  - Feeling abnormal [Unknown]
  - Nasal congestion [Unknown]
  - Sinusitis [Unknown]
  - Psoriasis [Unknown]
  - Injection site pain [Unknown]
  - Aphonia [Unknown]

NARRATIVE: CASE EVENT DATE: 20160321
